FAERS Safety Report 12800258 (Version 1)
Quarter: 2016Q3

REPORT INFORMATION
  Report Type: Spontaneous
  Country: US (occurrence: US)
  Receive Date: 20160930
  Receipt Date: 20160930
  Transmission Date: 20161109
  Serious: Yes (Other)
  Sender: FDA-Public Use
  Company Number: US-TEVA-697669USA

PATIENT
  Sex: Female

DRUGS (8)
  1. COPAXONE [Suspect]
     Active Substance: GLATIRAMER ACETATE
     Indication: MULTIPLE SCLEROSIS
     Route: 058
  2. LIDOCAINE. [Concomitant]
     Active Substance: LIDOCAINE
  3. PENICILLIN [Concomitant]
     Active Substance: PENICILLIN
  4. DARVOCET [Concomitant]
     Active Substance: ACETAMINOPHEN\PROPOXYPHENE HYDROCHLORIDE
  5. PERCODAN [Concomitant]
     Active Substance: ASPIRIN\OXYCODONE HYDROCHLORIDE
  6. TETRACYCLINE [Concomitant]
     Active Substance: TETRACYCLINE
  7. PERCOCET [Concomitant]
     Active Substance: ACETAMINOPHEN\OXYCODONE HYDROCHLORIDE
  8. DARVON [Concomitant]
     Active Substance: PROPOXYPHENE HYDROCHLORIDE

REACTIONS (2)
  - Multiple sclerosis relapse [Unknown]
  - Malaise [Unknown]

NARRATIVE: CASE EVENT DATE: 2016
